FAERS Safety Report 4320887-0 (Version None)
Quarter: 2004Q1

REPORT INFORMATION
  Report Type: 
  Country: None (occurrence: None)
  Receive Date: 20040318
  Receipt Date: 20040309
  Transmission Date: 20041129
  Serious: Yes (Other)
  Sender: FDA-Public Use
  Company Number: 2004-03-0655

PATIENT
  Sex: Male

DRUGS (1)
  1. INTRON A [Suspect]
     Indication: LIVER DISORDER
     Dosage: UNKNOWN SUBCUTANEOUS
     Route: 058

REACTIONS (1)
  - TENDON INJURY [None]
